FAERS Safety Report 9844684 (Version 1)
Quarter: 2014Q1

REPORT INFORMATION
  Report Type: Spontaneous
  Country: CA (occurrence: CA)
  Receive Date: 20140127
  Receipt Date: 20140127
  Transmission Date: 20141002
  Serious: Yes (Disabling, Other)
  Sender: FDA-Public Use
  Company Number: CA-AMGEN-CANSP2014004449

PATIENT
  Age: 71 Year
  Sex: Female
  Weight: 63.49 kg

DRUGS (6)
  1. PROLIA [Suspect]
     Indication: PRODUCT USED FOR UNKNOWN INDICATION
     Dosage: 60 MG, UNK
     Route: 058
  2. ADVAIR [Concomitant]
  3. APO-OXAZEPAM [Concomitant]
  4. CALCIUM [Concomitant]
  5. VITAMIN D                          /00107901/ [Concomitant]
  6. VITALUX PLUS LUTEIN OMEGA 3 [Concomitant]

REACTIONS (9)
  - Amnesia [Unknown]
  - Balance disorder [Unknown]
  - Fall [Unknown]
  - Gastrointestinal sounds abnormal [Unknown]
  - Injection site pain [Unknown]
  - Pain in jaw [Unknown]
  - Wrist fracture [Unknown]
  - Insomnia [Unknown]
  - Arthralgia [Unknown]
